FAERS Safety Report 13080391 (Version 2)
Quarter: 2017Q1

REPORT INFORMATION
  Report Type: Report from Study
  Country: SE (occurrence: SE)
  Receive Date: 20170103
  Receipt Date: 20170209
  Transmission Date: 20170428
  Serious: Yes (Other)
  Sender: FDA-Public Use
  Company Number: SE-GLAXOSMITHKLINE-SE2016GSK192927

PATIENT
  Sex: Female
  Weight: 69 kg

DRUGS (2)
  1. MIRTAZAPINE. [Concomitant]
     Active Substance: MIRTAZAPINE
     Indication: ANXIETY
     Dosage: 15 MG, UNK
     Dates: start: 2015
  2. NICOTINE POLACRILEX [Suspect]
     Active Substance: NICOTINE
     Indication: SMOKING CESSATION THERAPY
     Dosage: 1 MG, UNK
     Dates: start: 1998

REACTIONS (6)
  - Drug dependence [Not Recovered/Not Resolved]
  - Sleep disorder [Unknown]
  - Infertility [Unknown]
  - Terminal insomnia [Unknown]
  - Blood prolactin increased [Unknown]
  - Anxiety [Unknown]

NARRATIVE: CASE EVENT DATE: 1998
